FAERS Safety Report 8340402-4 (Version None)
Quarter: 2012Q2

REPORT INFORMATION
  Report Type: 
  Country: None (occurrence: None)
  Receive Date: 20120507
  Receipt Date: 20090615
  Transmission Date: 20120825
  Serious: No
  Sender: FDA-Public Use
  Company Number: US-TEVA-2009007313

PATIENT
  Age: 67 Year
  Sex: Female

DRUGS (2)
  1. TREANDA [Suspect]
     Route: 042
  2. TREANDA [Suspect]
     Route: 042

REACTIONS (1)
  - BLOOD ALKALINE PHOSPHATASE INCREASED [None]
